FAERS Safety Report 21349964 (Version 1)
Quarter: 2022Q3

REPORT INFORMATION
  Report Type: Spontaneous
  Country: US (occurrence: None)
  Receive Date: 20220917
  Receipt Date: 20220917
  Transmission Date: 20221027
  Serious: Yes (Disabling)
  Sender: FDA-Public Use
  Company Number: None

PATIENT
  Age: 35 Year
  Sex: Female
  Weight: 63 kg

DRUGS (3)
  1. DEPO-PROVERA [Suspect]
     Active Substance: MEDROXYPROGESTERONE ACETATE
     Indication: Contraception
     Dosage: OTHER FREQUENCY : THREE MONTH SHOT;?
     Route: 030
     Dates: start: 20190618, end: 20220901
  2. Calcium+ vitamin d3 [Concomitant]
  3. Womens multi vitamin [Concomitant]

REACTIONS (7)
  - Bone density decreased [None]
  - Osteopenia [None]
  - Osteolysis [None]
  - Hypoglossal nerve disorder [None]
  - Schwannoma [None]
  - Deafness [None]
  - Vertigo [None]

NARRATIVE: CASE EVENT DATE: 20220902
